FAERS Safety Report 7250127-4 (Version None)
Quarter: 2011Q1

REPORT INFORMATION
  Report Type: 
  Country: None (occurrence: None)
  Receive Date: 20110128
  Receipt Date: 20101223
  Transmission Date: 20110831
  Serious: Yes (Hospitalization, Other)
  Sender: FDA-Public Use
  Company Number: US-BAYER-201029568NA

PATIENT
  Sex: Female
  Weight: 49.887 kg

DRUGS (2)
  1. YAZ [Suspect]
     Dosage: UNK
     Dates: start: 20080101
  2. YASMIN [Suspect]
     Indication: PRODUCT USED FOR UNKNOWN INDICATION
     Route: 048
     Dates: start: 20070701, end: 20080701

REACTIONS (10)
  - DIZZINESS [None]
  - CEREBROVASCULAR ACCIDENT [None]
  - DEPRESSION [None]
  - PRESYNCOPE [None]
  - VOMITING [None]
  - DYSARTHRIA [None]
  - DIPLOPIA [None]
  - HEMIPARESIS [None]
  - MENTAL DISORDER [None]
  - MULTIPLE SCLEROSIS [None]
